FAERS Safety Report 5481895-X (Version None)
Quarter: 2007Q4

REPORT INFORMATION
  Report Type: 
  Country: None (occurrence: None)
  Receive Date: 20071005
  Receipt Date: 20070920
  Transmission Date: 20080405
  Serious: Yes (Hospitalization, Other)
  Sender: FDA-Public Use
  Company Number: TPA2007A01862

PATIENT
  Age: 74 Year
  Sex: Female
  Weight: 97.5234 kg

DRUGS (5)
  1. ACTOS [Suspect]
     Indication: TYPE 2 DIABETES MELLITUS
     Dosage: 30 MG, 1 IN 1 D,  PER ORAL
     Route: 048
     Dates: start: 20050101
  2. POTASSIUM CHLORIDE [Concomitant]
  3. TOPROL-XL [Concomitant]
  4. ISOSORBIDE (ISOSORBIDE) [Concomitant]
  5. SUCRALFATE [Concomitant]

REACTIONS (5)
  - ASTHENIA [None]
  - BLINDNESS [None]
  - FEELING ABNORMAL [None]
  - HAEMOGLOBIN DECREASED [None]
  - ULCER [None]
